FAERS Safety Report 20957130 (Version 1)
Quarter: 2022Q2

REPORT INFORMATION
  Report Type: Spontaneous
  Country: US (occurrence: US)
  Receive Date: 20220614
  Receipt Date: 20220614
  Transmission Date: 20220720
  Serious: No
  Sender: FDA-Public Use
  Company Number: US-PFM-2020-20233

PATIENT
  Sex: Female
  Weight: 5.896 kg

DRUGS (2)
  1. HEMANGEOL [Suspect]
     Active Substance: PROPRANOLOL HYDROCHLORIDE
     Indication: Infantile haemangioma
     Dosage: 1.8 ML, BID (2/DAY), EVERY 12 HOURS
     Route: 065
  2. HEMANGEOL [Suspect]
     Active Substance: PROPRANOLOL HYDROCHLORIDE
     Dosage: TAKE 1.9ML BY MOUTH 2 TIMES DAILY WITH FOOD AS DIRECTED
     Route: 048
     Dates: start: 20201008

REACTIONS (5)
  - Nasal congestion [Unknown]
  - Eczema [Unknown]
  - Restless legs syndrome [Unknown]
  - Seborrhoeic dermatitis [Unknown]
  - Urticaria [Unknown]
